FAERS Safety Report 9300256 (Version 3)
Quarter: 2013Q3

REPORT INFORMATION
  Report Type: Report from Study
  Country: CA (occurrence: CA)
  Receive Date: 20130521
  Receipt Date: 20130906
  Transmission Date: 20140515
  Serious: Yes (Death, Hospitalization, Other)
  Sender: FDA-Public Use
  Company Number: PHHY2013CA049915

PATIENT
  Age: 27 Year
  Sex: Male

DRUGS (1)
  1. CLOZARIL [Suspect]
     Indication: SCHIZOPHRENIA
     Dosage: UNK
     Dates: start: 20120104, end: 20130502

REACTIONS (4)
  - Completed suicide [Fatal]
  - Burn of internal organs [Not Recovered/Not Resolved]
  - Dysphagia [Not Recovered/Not Resolved]
  - Depressed mood [Unknown]
